FAERS Safety Report 16738127 (Version 1)
Quarter: 2019Q3

REPORT INFORMATION
  Report Type: Spontaneous
  Country: GB (occurrence: GB)
  Receive Date: 20190824
  Receipt Date: 20190824
  Transmission Date: 20191005
  Serious: Yes (Disabling, Other)
  Sender: FDA-Public Use
  Company Number: GB-009507513-1908GBR007297

PATIENT
  Age: 49 Year
  Sex: Male
  Weight: 62 kg

DRUGS (13)
  1. PANTOPRAZOLE [Concomitant]
     Active Substance: PANTOPRAZOLE
     Dosage: 2 DOSAGE FORM, 1 DAY (EACH MORNING)
     Dates: start: 20190212
  2. THIAMINE. [Concomitant]
     Active Substance: THIAMINE
     Dosage: 1 DOSAGE FORM, 1 DAY
     Dates: start: 20190212
  3. MIRTAZAPINE. [Suspect]
     Active Substance: MIRTAZAPINE
     Dosage: 15 MILLIGRAM, QD (AT NIGHT)
     Dates: start: 20190607
  4. CODEINE PHOSPHATE [Concomitant]
     Active Substance: CODEINE PHOSPHATE
     Indication: ABDOMINAL PAIN UPPER
     Dosage: 1-2 UP TO 4 TIMES A DAY
     Dates: start: 20190516, end: 20190523
  5. DIHYDROCODEINE [Concomitant]
     Active Substance: DIHYDROCODEINE
     Dosage: 1 DOSAGE FORM (EVERY 4-6 HOURS)
     Dates: start: 20190607
  6. RAMIPRIL. [Concomitant]
     Active Substance: RAMIPRIL
     Dosage: 1 DOSAGE FORM, 1 DAY
     Dates: start: 20190212
  7. TRAMADOL HYDROCHLORIDE. [Concomitant]
     Active Substance: TRAMADOL HYDROCHLORIDE
     Indication: ABDOMINAL PAIN UPPER
     Dosage: TAKE 1-2 DAILY
     Dates: start: 20190212, end: 20190607
  8. VENTOLIN [Concomitant]
     Active Substance: ALBUTEROL SULFATE
     Dosage: 2 DOSAGE FORM (AS NECESSARY)
     Route: 055
     Dates: start: 20190212
  9. CREON [Concomitant]
     Active Substance: PANCRELIPASE AMYLASE\PANCRELIPASE LIPASE\PANCRELIPASE PROTEASE
     Dosage: TID (THREE TIMES A DAY)
     Dates: start: 20190212
  10. SERTRALINE HYDROCHLORIDE. [Concomitant]
     Active Substance: SERTRALINE HYDROCHLORIDE
     Dosage: 1 DOSAGE FORM, 1 DAY
     Dates: start: 20190212
  11. BISOPROLOL [Concomitant]
     Active Substance: BISOPROLOL
     Dosage: 1 DOSAGE FORM, 1 DAY
     Dates: start: 20190212
  12. VITAMIN B (UNSPECIFIED) [Concomitant]
     Active Substance: VITAMIN B
     Dosage: 2 DOSAGE FORM, 1 DAY
     Dates: start: 20190212
  13. FORTISIP [Concomitant]
     Active Substance: CARBOHYDRATES\FATTY ACIDS\MINERALS\PROTEIN\VITAMINS
     Dosage: USE AS DIRECTED
     Dates: start: 20190607, end: 20190608

REACTIONS (3)
  - Depressed mood [Recovered/Resolved]
  - Anxiety [Unknown]
  - Fear [Unknown]
